FAERS Safety Report 5274322-9 (Version None)
Quarter: 2007Q1

REPORT INFORMATION
  Report Type: 
  Country: None (occurrence: None)
  Receive Date: 20070323
  Receipt Date: 20070317
  Transmission Date: 20070707
  Serious: Yes (Hospitalization)
  Sender: FDA-Public Use
  Company Number: PT-AMGEN-UK209510

PATIENT

DRUGS (1)
  1. CINACALCET [Suspect]
     Indication: HYPERPARATHYROIDISM SECONDARY
     Route: 065

REACTIONS (1)
  - HOSPITALISATION [None]
